FAERS Safety Report 20564644 (Version 2)
Quarter: 2022Q3

REPORT INFORMATION
  Report Type: Spontaneous
  Country: HU (occurrence: HU)
  Receive Date: 20220308
  Receipt Date: 20220812
  Transmission Date: 20221027
  Serious: Yes (Death, Life-Threatening, Hospitalization, Other)
  Sender: FDA-Public Use
  Company Number: HU-Accord-240961

PATIENT
  Age: 68 Year
  Sex: Male
  Weight: 74.2 kg

DRUGS (6)
  1. GEMCITABINE [Suspect]
     Active Substance: GEMCITABINE
     Indication: Product used for unknown indication
     Dosage: DOSE: 1Q2W ,ROUTE OF ADMINISTRATION : INTRAVENOUS .UNIT DOSE:1000MG/M2 , FREQUENCY TIME : 1 DAY
     Route: 042
     Dates: start: 20210907, end: 20210907
  2. OXALIPLATIN [Suspect]
     Active Substance: OXALIPLATIN
     Indication: Product used for unknown indication
     Dosage: 1Q2W , ROUTE OF ADMINISTRATION : INTRAVENOUS .UNIT DOSE:100MG/M2 ,FREQUENCY TIME : 1DAY
     Route: 042
     Dates: start: 20210907, end: 20210907
  3. RITUXIMAB [Suspect]
     Active Substance: RITUXIMAB
     Indication: Product used for unknown indication
     Dosage: 1Q2W,ROUTE OF ADMINISTRATION : INTRAVENOUS .UNIT DOSE:375MG/M2 , FREQUENCY TIME : 1DAY
     Route: 042
     Dates: start: 20210906, end: 20210906
  4. ACYCLOVIR [Concomitant]
     Active Substance: ACYCLOVIR
     Indication: Product used for unknown indication
     Dates: start: 2018, end: 20210923
  5. CONTROLOC [Concomitant]
     Active Substance: PANTOPRAZOLE SODIUM
     Indication: Product used for unknown indication
     Dates: start: 2018, end: 20210923
  6. ENOXAPARIN SODIUM [Concomitant]
     Active Substance: ENOXAPARIN SODIUM
     Indication: Product used for unknown indication
     Dates: start: 2021, end: 20210923

REACTIONS (1)
  - Neutropenic sepsis [Fatal]

NARRATIVE: CASE EVENT DATE: 20210914
